FAERS Safety Report 5586108-6 (Version None)
Quarter: 2007Q4

REPORT INFORMATION
  Report Type: 
  Country: None (occurrence: None)
  Receive Date: 20071205
  Receipt Date: 20070111
  Transmission Date: 20080405
  Serious: Yes (Hospitalization, Other)
  Sender: FDA-Public Use
  Company Number: HQWYE282212JAN07

PATIENT
  Age: 43 Year
  Sex: Male
  Weight: 133.93 kg

DRUGS (7)
  1. EFFEXOR XR [Suspect]
     Dosage: SEE IMAGE
     Route: 048
     Dates: start: 20061216, end: 20061222
  2. EFFEXOR XR [Suspect]
     Dosage: SEE IMAGE
     Route: 048
     Dates: start: 20061223, end: 20070105
  3. SIMVASTATIN [Concomitant]
  4. COREG [Concomitant]
  5. LISINOPRIL [Concomitant]
  6. LASIX [Concomitant]
  7. GLIPIZIDE [Concomitant]

REACTIONS (1)
  - PANCREATITIS [None]
